FAERS Safety Report 12877004 (Version 1)
Quarter: 2016Q4

REPORT INFORMATION
  Report Type: Spontaneous
  Country: FI (occurrence: FI)
  Receive Date: 20161024
  Receipt Date: 20161024
  Transmission Date: 20170207
  Serious: Yes (Hospitalization)
  Sender: FDA-Public Use
  Company Number: FI-PFIZER INC-2016481563

PATIENT
  Age: 42 Year
  Sex: Female

DRUGS (6)
  1. PACLITAXEL HOSPIRA [Suspect]
     Active Substance: PACLITAXEL
     Indication: LUNG NEOPLASM MALIGNANT
     Dosage: 340 MG, UNK
     Route: 042
     Dates: start: 20160811, end: 20160811
  2. GRANISETRON [Concomitant]
     Active Substance: GRANISETRON
     Indication: PREMEDICATION
     Dosage: 2 MG, AN HOUR PRIOR TO PACLITAXEL
     Route: 048
     Dates: start: 20160811, end: 20160811
  3. CARBOPLATIN. [Concomitant]
     Active Substance: CARBOPLATIN
     Indication: LUNG NEOPLASM MALIGNANT
     Dosage: 660 MG, UNK
     Route: 042
     Dates: start: 20160811, end: 20160811
  4. ZYRTEC [Concomitant]
     Active Substance: CETIRIZINE HYDROCHLORIDE
     Indication: PREMEDICATION
     Dosage: 10MG, AN HOUR PRIOR TO PACLITAXEL
     Route: 048
     Dates: start: 20160811, end: 20160811
  5. ZANTAC [Concomitant]
     Active Substance: RANITIDINE HYDROCHLORIDE
     Indication: PREMEDICATION
     Dosage: 50 MG, AN HOUR PRIOR TO PACLITAXEL
     Route: 042
     Dates: start: 20160811, end: 20160811
  6. ORADEXON /00016001/ [Concomitant]
     Indication: PREMEDICATION
     Dosage: 20 MG, AN HOUR PRIOR TO PACLITAXEL
     Route: 042
     Dates: start: 20160811, end: 20160811

REACTIONS (5)
  - Burning sensation [Recovered/Resolved]
  - Chest pain [Recovered/Resolved]
  - Ear discomfort [Recovered/Resolved]
  - Palpitations [Recovered/Resolved]
  - Erythema [Recovered/Resolved]

NARRATIVE: CASE EVENT DATE: 20160811
